FAERS Safety Report 24118578 (Version 1)
Quarter: 2024Q3

REPORT INFORMATION
  Report Type: Spontaneous
  Country: US (occurrence: None)
  Receive Date: 20240717
  Receipt Date: 20240717
  Transmission Date: 20241017
  Serious: Yes (Other)
  Sender: Public
  Company Number: None

PATIENT
  Age: 22 Year
  Sex: Female
  Weight: 68.04 kg

DRUGS (1)
  1. NEXPLANON [Suspect]
     Active Substance: ETONOGESTREL
     Indication: Contraception
     Dates: start: 20210717, end: 20240717

REACTIONS (1)
  - Device placement issue [None]

NARRATIVE: CASE EVENT DATE: 20240717
